FAERS Safety Report 8174012-9 (Version None)
Quarter: 2012Q1

REPORT INFORMATION
  Report Type: 
  Country: None (occurrence: None)
  Receive Date: 20120229
  Receipt Date: 20120208
  Transmission Date: 20120608
  Serious: Yes (Hospitalization)
  Sender: FDA-Public Use
  Company Number: PT-ACTELION PHARMACEUTICALS LTD-A-CH2012-60760

PATIENT
  Age: 26 Year
  Sex: Female
  Weight: 55 kg

DRUGS (4)
  1. ASPIRIN [Concomitant]
  2. TRACLEER [Suspect]
     Indication: SKIN ULCER
     Dosage: 125 MG, BID
     Route: 048
     Dates: start: 20091102
  3. PREDNISOLONE [Concomitant]
  4. NIFEDIPINE [Concomitant]

REACTIONS (8)
  - INFECTED SKIN ULCER [None]
  - RAYNAUD'S PHENOMENON [None]
  - INFLAMMATION [None]
  - RIGHT VENTRICULAR FAILURE [None]
  - SKIN ULCER [None]
  - CONDITION AGGRAVATED [None]
  - PULMONARY FIBROSIS [None]
  - COUGH [None]
